FAERS Safety Report 14137145 (Version 1)
Quarter: 2017Q4

REPORT INFORMATION
  Report Type: Spontaneous
  Country: IT (occurrence: IT)
  Receive Date: 20171027
  Receipt Date: 20171027
  Transmission Date: 20180321
  Serious: Yes (Hospitalization)
  Sender: FDA-Public Use
  Company Number: PHHY2017IT157716

PATIENT
  Age: 16 Year
  Sex: Male

DRUGS (4)
  1. AMOXICILLIN + CLAVULANATE POTASSIUM [Suspect]
     Active Substance: AMOXICILLIN\CLAVULANATE POTASSIUM
     Indication: TONSILLITIS
     Dosage: 2 DF, QD
     Route: 048
     Dates: start: 20110123, end: 20110125
  2. IOSALIDE [Suspect]
     Active Substance: JOSAMYCIN PROPIONATE
     Indication: TONSILLITIS
     Dosage: 3 DF, TOTAL
     Route: 065
     Dates: start: 20110126, end: 20110127
  3. FLEBOCORTID [Concomitant]
     Active Substance: HYDROCORTISONE SODIUM SUCCINATE
     Indication: PRODUCT USED FOR UNKNOWN INDICATION
     Dosage: 10 MG, TOTAL
     Route: 030
     Dates: start: 20101201
  4. TRIMETON [Concomitant]
     Active Substance: CHLORPHENIRAMINE MALEATE
     Indication: PRODUCT USED FOR UNKNOWN INDICATION
     Route: 065

REACTIONS (3)
  - Lip oedema [Recovering/Resolving]
  - Eyelid oedema [Recovering/Resolving]
  - Rash papular [Recovering/Resolving]

NARRATIVE: CASE EVENT DATE: 20110127
